FAERS Safety Report 10706815 (Version 1)
Quarter: 2015Q1

REPORT INFORMATION
  Report Type: Spontaneous
  Country: BR (occurrence: BR)
  Receive Date: 20150113
  Receipt Date: 20150113
  Transmission Date: 20150721
  Serious: Yes (Other)
  Sender: FDA-Public Use
  Company Number: BR-PFIZER INC-2015008214

PATIENT
  Sex: Female

DRUGS (1)
  1. FRONTAL [Suspect]
     Active Substance: ALPRAZOLAM
     Indication: PANIC DISORDER
     Dosage: UNSPECIFIED DOSAGE, AS NEEDED (WHEN SHE HAD PANIC CRISIS)

REACTIONS (6)
  - Panic attack [Unknown]
  - Glaucoma [Unknown]
  - Fear [Not Recovered/Not Resolved]
  - Anxiety [Unknown]
  - Visual impairment [Unknown]
  - Cerebrovascular accident [Unknown]

NARRATIVE: CASE EVENT DATE: 2000
